FAERS Safety Report 15187996 (Version 1)
Quarter: 2018Q3

REPORT INFORMATION
  Report Type: Spontaneous
  Country: US (occurrence: US)
  Receive Date: 20180724
  Receipt Date: 20180724
  Transmission Date: 20181010
  Serious: No
  Sender: FDA-Public Use
  Company Number: US-ASTRAZENECA-2018SE93061

PATIENT
  Age: 37 Year
  Sex: Female
  Weight: 63.5 kg

DRUGS (1)
  1. SEROQUEL [Suspect]
     Active Substance: QUETIAPINE FUMARATE
     Indication: SLEEP DISORDER
     Route: 048
     Dates: start: 2008, end: 20180705

REACTIONS (10)
  - Sleep disorder [Not Recovered/Not Resolved]
  - Metrorrhagia [Unknown]
  - Off label use [Unknown]
  - Product use in unapproved indication [Unknown]
  - Pruritus [Unknown]
  - Blood cholesterol abnormal [Unknown]
  - Abnormal dreams [Not Recovered/Not Resolved]
  - Somnolence [Unknown]
  - Glucose tolerance impaired [Not Recovered/Not Resolved]
  - Overweight [Not Recovered/Not Resolved]

NARRATIVE: CASE EVENT DATE: 2008
